FAERS Safety Report 5660512-X (Version None)
Quarter: 2008Q1

REPORT INFORMATION
  Report Type: 
  Country: None (occurrence: None)
  Receive Date: 20080306
  Receipt Date: 20080228
  Transmission Date: 20080703
  Serious: Yes (Other)
  Sender: FDA-Public Use
  Company Number: 2008-01613

PATIENT
  Age: 13 Year
  Sex: Female

DRUGS (2)
  1. LIDOCAINE HYDROCHLORIDE 1% WITH EPINEPHRINE (EPINEPHRINE, LIDOCAINE HY [Suspect]
     Indication: COMPARTMENT SYNDROME
     Dosage: 10 ML
  2. ROPIVACAINE              (ROPIVACAINE) 0.75% [Suspect]
     Indication: COMPARTMENT SYNDROME
     Dosage: 10 ML

REACTIONS (2)
  - DRUG TOXICITY [None]
  - VENTRICULAR ARRHYTHMIA [None]
